FAERS Safety Report 4690100-3 (Version None)
Quarter: 2005Q2

REPORT INFORMATION
  Report Type: 
  Country: None (occurrence: None)
  Receive Date: 20050613
  Receipt Date: 20050601
  Transmission Date: 20051028
  Serious: Yes (Hospitalization, Other)
  Sender: FDA-Public Use
  Company Number: HQWYE062511MAR05

PATIENT
  Age: 32 Year
  Sex: Female

DRUGS (4)
  1. ANGE-28 (LEVONORGESTREL/ETHINYL ESTRADIOL/INERT, TABLET) [Suspect]
     Indication: DYSMENORRHOEA
     Dosage: 1 TABLET 1X PER 1 DAY ORAL
     Route: 048
     Dates: start: 20050201, end: 20050306
  2. LOXONIN (LOXOPROFEN SODIUM) [Concomitant]
  3. SELBEX (TEPRENONE) [Concomitant]
  4. DIHYDROCODEINE PHOSPHATE (DIHYDROCODEINE PHOSPHATE) [Concomitant]

REACTIONS (1)
  - TOXIC SKIN ERUPTION [None]
